FAERS Safety Report 5749211-3 (Version None)
Quarter: 2008Q2

REPORT INFORMATION
  Report Type: 
  Country: None (occurrence: None)
  Receive Date: 20080521
  Receipt Date: 20080521
  Transmission Date: 20081010
  Serious: Yes (Life-Threatening, Hospitalization)
  Sender: FDA-Public Use
  Company Number: None

PATIENT
  Sex: Female
  Weight: 96 kg

DRUGS (2)
  1. BACTRIM [Suspect]
     Indication: WOUND INFECTION
     Dosage: PO
     Route: 048
     Dates: start: 20080502, end: 20080512
  2. DORIPENEM 500 MG MCNEIL [Suspect]
     Indication: SEPSIS
     Dosage: 250MG Q12H IV
     Route: 042
     Dates: start: 20080516, end: 20080517

REACTIONS (10)
  - CHILLS [None]
  - COAGULOPATHY [None]
  - DIALYSIS [None]
  - DIARRHOEA [None]
  - NAUSEA [None]
  - PYREXIA [None]
  - RENAL FAILURE ACUTE [None]
  - SEPSIS [None]
  - THROMBOTIC THROMBOCYTOPENIC PURPURA [None]
  - VOMITING [None]
